FAERS Safety Report 12484871 (Version 1)
Quarter: 2016Q2

REPORT INFORMATION
  Report Type: Report from Study
  Country: US (occurrence: US)
  Receive Date: 20160621
  Receipt Date: 20160621
  Transmission Date: 20160815
  Serious: Yes (Hospitalization, Other)
  Sender: FDA-Public Use
  Company Number: US-BIOGEN-2013BI025192

PATIENT
  Age: 58 Year
  Sex: Female
  Weight: 47.22 kg

DRUGS (6)
  1. GABAPENTIN. [Concomitant]
     Active Substance: GABAPENTIN
     Indication: PAIN
     Route: 065
  2. AVONEX [Suspect]
     Active Substance: INTERFERON BETA-1A
     Indication: MULTIPLE SCLEROSIS
     Route: 030
     Dates: start: 20020630, end: 2003
  3. AVONEX [Suspect]
     Active Substance: INTERFERON BETA-1A
     Route: 030
     Dates: start: 2003
  4. SYNTHROID [Concomitant]
     Active Substance: LEVOTHYROXINE SODIUM
     Indication: THYROID DISORDER
     Route: 065
  5. SYNTHROID [Concomitant]
     Active Substance: LEVOTHYROXINE SODIUM
     Route: 065
  6. AVONEX [Suspect]
     Active Substance: INTERFERON BETA-1A
     Route: 030
     Dates: start: 20020630

REACTIONS (25)
  - Duodenal ulcer haemorrhage [Recovered/Resolved]
  - Pneumonia aspiration [Recovered/Resolved]
  - Vision blurred [Not Recovered/Not Resolved]
  - Ageusia [Not Recovered/Not Resolved]
  - Body height decreased [Not Recovered/Not Resolved]
  - Bladder cancer [Recovered/Resolved]
  - Urinary incontinence [Recovered/Resolved]
  - Paraesthesia [Not Recovered/Not Resolved]
  - Procedural pain [Not Recovered/Not Resolved]
  - Apparent death [Recovered/Resolved]
  - Cardiac arrest [Recovered/Resolved]
  - Cataract [Recovered/Resolved]
  - Memory impairment [Not Recovered/Not Resolved]
  - Balance disorder [Not Recovered/Not Resolved]
  - Blood potassium decreased [Recovered/Resolved]
  - Hypoaesthesia [Not Recovered/Not Resolved]
  - Herpes zoster [Recovered/Resolved]
  - Tremor [Not Recovered/Not Resolved]
  - Alopecia [Not Recovered/Not Resolved]
  - Bladder cancer recurrent [Unknown]
  - Weight decreased [Recovered/Resolved]
  - Thyroid disorder [Unknown]
  - Cardiac failure [Recovered/Resolved]
  - Gastric disorder [Unknown]
  - Decreased appetite [Recovered/Resolved]

NARRATIVE: CASE EVENT DATE: 200206
